FAERS Safety Report 6932135-3 (Version None)
Quarter: 2010Q3

REPORT INFORMATION
  Report Type: 
  Country: None (occurrence: None)
  Receive Date: 20100819
  Receipt Date: 20100811
  Transmission Date: 20110219
  Serious: Yes (Other)
  Sender: FDA-Public Use
  Company Number: A0876550A

PATIENT
  Age: 50 Year
  Sex: Female

DRUGS (2)
  1. LAMICTAL XR [Suspect]
     Route: 048
  2. KEPPRA XR [Suspect]
     Route: 065

REACTIONS (2)
  - CONVULSION [None]
  - GRAND MAL CONVULSION [None]
